FAERS Safety Report 8609330-0 (Version None)
Quarter: 2012Q3

REPORT INFORMATION
  Report Type: 
  Country: None (occurrence: None)
  Receive Date: 20120821
  Receipt Date: 20120817
  Transmission Date: 20120928
  Serious: Yes (Death, Other)
  Sender: FDA-Public Use
  Company Number: PHHY2012GB071727

PATIENT
  Age: 2 Hour
  Sex: Male

DRUGS (2)
  1. METHADONE HYDROCHLORIDE [Suspect]
     Route: 064
  2. PROMETHAZINE [Suspect]
     Route: 064

REACTIONS (3)
  - TOXICITY TO VARIOUS AGENTS [None]
  - NEONATAL HYPOXIA [None]
  - FOETAL EXPOSURE DURING PREGNANCY [None]
